FAERS Safety Report 21968207 (Version 1)
Quarter: 2023Q1

REPORT INFORMATION
  Report Type: Spontaneous
  Country: US (occurrence: US)
  Receive Date: 20230208
  Receipt Date: 20230208
  Transmission Date: 20230417
  Serious: No
  Sender: FDA-Public Use
  Company Number: US-INCYTE CORPORATION-2023IN001219

PATIENT

DRUGS (1)
  1. JAKAFI [Suspect]
     Active Substance: RUXOLITINIB
     Indication: Acute myeloid leukaemia
     Dosage: 5 MILLIGRAM, BID, TAKE 1 TAB (5MG) BY MOUTH IN MORNING AND 1 TAB (5MG) BEFORE BEDTIME AT ABOUT THE S
     Route: 048

REACTIONS (2)
  - Product dose omission in error [Unknown]
  - Off label use [Unknown]
